FAERS Safety Report 4838414-8 (Version None)
Quarter: 2005Q4

REPORT INFORMATION
  Report Type: 
  Country: None (occurrence: None)
  Receive Date: 20051128
  Receipt Date: 20040721
  Transmission Date: 20060501
  Serious: Yes (Death)
  Sender: FDA-Public Use
  Company Number: PHEH2004CN13942

PATIENT
  Sex: Male

DRUGS (1)
  1. GLEEVEC [Suspect]
     Dosage: 600 MG, QD
     Route: 048

REACTIONS (3)
  - BLAST CRISIS IN MYELOGENOUS LEUKAEMIA [None]
  - MULTI-ORGAN FAILURE [None]
  - PNEUMONIA [None]
